FAERS Safety Report 7285839-X (Version None)
Quarter: 2011Q1

REPORT INFORMATION
  Report Type: 
  Country: None (occurrence: None)
  Receive Date: 20110210
  Receipt Date: 20110203
  Transmission Date: 20110831
  Serious: Yes (Death)
  Sender: FDA-Public Use
  Company Number: ES-BRISTOL-MYERS SQUIBB COMPANY-15466535

PATIENT
  Age: 53 Year
  Sex: Female

DRUGS (3)
  1. FLUOROURACIL [Suspect]
     Indication: COLON CANCER
     Dosage: FLUOROURACILO FERRER FARMA 5OMG/ML 1 VI SQL EFG (50 MILLIGRAM/MILLILITERS)
     Route: 042
     Dates: start: 20100723
  2. OXALIPLATIN [Suspect]
     Indication: COLON CANCER
     Dosage: OXALIPLATINO HOSPIRA 5 MG/ML CONCENTRADO PARA SOLUCION PARA PERFUSION (5 MILLIGRAM/MILLILITERS)
     Route: 042
     Dates: start: 20100723, end: 20101015
  3. ERBITUX [Suspect]
     Indication: COLON CANCER
     Dosage: STRENGTH:5 MG/ML,1 VIAL 20 ML PERFUSION
     Route: 065
     Dates: start: 20100723, end: 20101015

REACTIONS (1)
  - NEUTROPENIC SEPSIS [None]
